FAERS Safety Report 7491964 (Version 2)
Quarter: 2021Q1

REPORT INFORMATION
  Report Type: Spontaneous
  Country: IT (occurrence: IT)
  Receive Date: 20100721
  Receipt Date: 20210107
  Transmission Date: 20210420
  Serious: Yes (Other)
  Sender: FDA-Public Use
  Company Number: IT-PFIZER INC-2010088578

PATIENT
  Age: 26 Year
  Sex: Female
  Weight: 48 kg

DRUGS (4)
  1. FEDRA [Suspect]
     Active Substance: ETHINYL ESTRADIOL\GESTODENE
     Indication: HYPOGONADISM
     Dosage: ONCE DAILY FOR 21DAYS/MONTH
     Dates: start: 2004, end: 200802
  2. FEDRA [Suspect]
     Active Substance: ETHINYL ESTRADIOL\GESTODENE
     Dosage: ONCE DAILY FOR 21DAYS/MONTH
     Dates: start: 200806
  3. EUTIROX [Suspect]
     Active Substance: LEVOTHYROXINE SODIUM
     Indication: THYROID HORMONE REPLACEMENT THERAPY
     Dosage: 25 UG, 1X/DAY
     Dates: start: 2004, end: 200802
  4. GENOTROPIN [Suspect]
     Active Substance: SOMATROPIN
     Indication: GROWTH HORMONE DEFICIENCY
     Dosage: 0.8 MG, 1X/DAY
     Route: 058
     Dates: start: 2004, end: 200606

REACTIONS (1)
  - Malignant melanoma [Unknown]

NARRATIVE: CASE EVENT DATE: 200702
